FAERS Safety Report 17180193 (Version 1)
Quarter: 2019Q4

REPORT INFORMATION
  Report Type: Report from Study
  Country: FR (occurrence: FR)
  Receive Date: 20191220
  Receipt Date: 20191220
  Transmission Date: 20200122
  Serious: Yes (Hospitalization)
  Sender: FDA-Public Use
  Company Number: FR-ROCHE-2497558

PATIENT
  Sex: Female
  Weight: 77 kg

DRUGS (15)
  1. ATEZOLIZUMAB. [Suspect]
     Active Substance: ATEZOLIZUMAB
     Dosage: CYCLE 2
     Route: 065
     Dates: start: 20190716, end: 20190716
  2. CARBOPLATINE [Concomitant]
     Active Substance: CARBOPLATIN
     Dosage: CYCLE 4
     Route: 065
     Dates: start: 20190903, end: 20190903
  3. CARBOPLATINE [Concomitant]
     Active Substance: CARBOPLATIN
     Indication: BRONCHIAL CARCINOMA
     Dosage: CYCLE 1
     Route: 065
     Dates: start: 20190625, end: 20190625
  4. CARBOPLATINE [Concomitant]
     Active Substance: CARBOPLATIN
     Dosage: CYCLE 2
     Route: 065
     Dates: start: 20190716, end: 20190716
  5. ETOPOSIDE. [Concomitant]
     Active Substance: ETOPOSIDE
     Dosage: CYCLE 2
     Route: 065
     Dates: start: 20190716, end: 20190716
  6. ATEZOLIZUMAB. [Suspect]
     Active Substance: ATEZOLIZUMAB
     Indication: BRONCHIAL CARCINOMA
     Dosage: CYCLE 1
     Route: 065
     Dates: start: 20190625, end: 20190625
  7. ATEZOLIZUMAB. [Suspect]
     Active Substance: ATEZOLIZUMAB
     Dosage: CYCLE 4
     Route: 065
     Dates: start: 20190903, end: 20190903
  8. ATEZOLIZUMAB. [Suspect]
     Active Substance: ATEZOLIZUMAB
     Dosage: CYCLE 3
     Route: 065
     Dates: start: 20190813, end: 20190813
  9. ATEZOLIZUMAB. [Suspect]
     Active Substance: ATEZOLIZUMAB
     Dosage: CYCLE 5
     Route: 065
     Dates: start: 20190924, end: 20190924
  10. ETOPOSIDE. [Concomitant]
     Active Substance: ETOPOSIDE
     Indication: BRONCHIAL CARCINOMA
     Dosage: CYCLE 1
     Route: 065
     Dates: start: 20190625, end: 20190625
  11. ETOPOSIDE. [Concomitant]
     Active Substance: ETOPOSIDE
     Dosage: CYCLE 4
     Route: 065
     Dates: start: 20190903, end: 20190903
  12. ATEZOLIZUMAB. [Suspect]
     Active Substance: ATEZOLIZUMAB
     Dosage: CYCLE 7
     Route: 065
     Dates: start: 20191105, end: 20191105
  13. ATEZOLIZUMAB. [Suspect]
     Active Substance: ATEZOLIZUMAB
     Dosage: CYCLE 6
     Route: 065
     Dates: start: 20191015, end: 20191015
  14. CARBOPLATINE [Concomitant]
     Active Substance: CARBOPLATIN
     Dosage: CYCLE 3
     Route: 065
     Dates: start: 20190813, end: 20190813
  15. ETOPOSIDE. [Concomitant]
     Active Substance: ETOPOSIDE
     Dosage: CYCLE 3
     Route: 065
     Dates: start: 20190813, end: 20190813

REACTIONS (3)
  - Autoimmune lung disease [Recovering/Resolving]
  - Acute respiratory failure [Recovering/Resolving]
  - Myocarditis [Recovering/Resolving]
